FAERS Safety Report 15716903 (Version 1)
Quarter: 2018Q4

REPORT INFORMATION
  Report Type: Other
  Country: ES (occurrence: ES)
  Receive Date: 20181213
  Receipt Date: 20181213
  Transmission Date: 20190205
  Serious: Yes (Other)
  Sender: FDA-Public Use
  Company Number: ES-CELLTRION INC.-2018ES024508

PATIENT

DRUGS (4)
  1. LEXATIN                            /00424801/ [Concomitant]
     Active Substance: BROMAZEPAM
  2. NEXIUM [Concomitant]
     Active Substance: ESOMEPRAZOLE MAGNESIUM
  3. TRUXIMA [Suspect]
     Active Substance: RITUXIMAB-ABBS
     Indication: NON-HODGKIN^S LYMPHOMA
     Dosage: 618 MG, 28 DAY
     Route: 042
     Dates: start: 20181029, end: 20181029
  4. DUODART [Concomitant]
     Active Substance: DUTASTERIDE\TAMSULOSIN

REACTIONS (4)
  - Paresis [Recovered/Resolved]
  - Eyelid oedema [Recovered/Resolved]
  - Pyrexia [Recovered/Resolved]
  - Diplopia [Recovered/Resolved]

NARRATIVE: CASE EVENT DATE: 20181030
